FAERS Safety Report 5578621-2 (Version None)
Quarter: 2007Q4

REPORT INFORMATION
  Report Type: 
  Country: None (occurrence: None)
  Receive Date: 20071227
  Receipt Date: 20071227
  Transmission Date: 20080405
  Serious: Yes (Hospitalization)
  Sender: FDA-Public Use
  Company Number: None

PATIENT
  Age: 64 Year
  Sex: Male
  Weight: 103.8 kg

DRUGS (9)
  1. WARFARIN SODIUM [Suspect]
     Indication: AORTIC VALVE REPLACEMENT
     Dosage: 10MG / 7.5MG  MWF/T TH SAT PO CHRONIC
     Route: 048
  2. ADVIL LIQUI-GELS [Suspect]
     Indication: MUSCULOSKELETAL PAIN
     Dosage: 2 TABS (?) DAILY PO
     Route: 048
  3. TOPROL-XL [Concomitant]
  4. LISINOPRIL AND HYDROCHLOROTHIAZIDE [Concomitant]
  5. ACTOS [Concomitant]
  6. VYTORIN [Concomitant]
  7. COUMADIN [Concomitant]
  8. METFORMIN [Concomitant]
  9. GLYBURIDE [Concomitant]

REACTIONS (2)
  - GASTRITIS [None]
  - UPPER GASTROINTESTINAL HAEMORRHAGE [None]
